FAERS Safety Report 8740562 (Version 5)
Quarter: 2014Q3

REPORT INFORMATION
  Report Type: Spontaneous
  Country: US (occurrence: US)
  Receive Date: 20120823
  Receipt Date: 20140827
  Transmission Date: 20150326
  Serious: Yes (Hospitalization, Other)
  Sender: FDA-Public Use
  Company Number: US-009507513-1208USA007401

PATIENT
  Sex: Female
  Weight: 77.98 kg

DRUGS (2)
  1. NUVARING [Suspect]
     Active Substance: ETHINYL ESTRADIOL\ETONOGESTREL
     Indication: CONTRACEPTION
     Dosage: 0.12/0.15MG INSERT ONE RING FOR 3 WEEKS THEN REMOVE FOR ONE WEEK
     Route: 067
     Dates: start: 20091005, end: 20111101
  2. NONSTEROIDAL ANTI-INFLAMMATORY DRUG (UNSPECIFIED) [Concomitant]
     Active Substance: UNSPECIFIED INGREDIENT
     Indication: ANALGESIC THERAPY
     Dosage: UNK, PRN

REACTIONS (2)
  - Pulmonary embolism [Recovered/Resolved]
  - Pectus excavatum [Unknown]

NARRATIVE: CASE EVENT DATE: 20111101
